FAERS Safety Report 9894922 (Version 3)
Quarter: 2014Q1

REPORT INFORMATION
  Report Type: Spontaneous
  Country: US (occurrence: US)
  Receive Date: 20140213
  Receipt Date: 20140220
  Transmission Date: 20141002
  Serious: Yes (Hospitalization)
  Sender: FDA-Public Use
  Company Number: US-GILEAD-2013-0090228

PATIENT
  Sex: Female

DRUGS (4)
  1. LETAIRIS [Suspect]
     Indication: PRODUCT USED FOR UNKNOWN INDICATION
     Dosage: 10 MG, QD
     Route: 048
     Dates: start: 20100526
  2. LETAIRIS [Suspect]
     Dates: start: 20100528
  3. SILDENAFIL CITRATE [Concomitant]
  4. REVATIO [Concomitant]

REACTIONS (3)
  - Pain [Unknown]
  - Neuropathy peripheral [Unknown]
  - Hypotension [Unknown]
